FAERS Safety Report 23570302 (Version 1)
Quarter: 2024Q1

REPORT INFORMATION
  Report Type: Spontaneous
  Country: FR (occurrence: FR)
  Receive Date: 20240227
  Receipt Date: 20240227
  Transmission Date: 20240410
  Serious: Yes (Hospitalization)
  Sender: FDA-Public Use
  Company Number: None

PATIENT
  Age: 60 Year
  Sex: Female
  Weight: 60 kg

DRUGS (15)
  1. VALGANCICLOVIR [Suspect]
     Active Substance: VALGANCICLOVIR
     Indication: Product used for unknown indication
     Dosage: DAILY DOSE: 450 MILLIGRAM
     Route: 048
     Dates: start: 20100429, end: 20101117
  2. CELLCEPT [Suspect]
     Active Substance: MYCOPHENOLATE MOFETIL
     Indication: Product used for unknown indication
     Dosage: BID?DAILY DOSE: 3000 MILLIGRAM
     Route: 048
     Dates: start: 20100429
  3. CELLCEPT [Suspect]
     Active Substance: MYCOPHENOLATE MOFETIL
     Indication: Product used for unknown indication
     Dosage: BID, ?DAILY DOSE: 200 MILLIGRAM
     Route: 048
  4. ESOMEPRAZOLE [Concomitant]
     Active Substance: ESOMEPRAZOLE
     Dosage: 40 (0.5/D)
  5. BISOPROLOL FUMARATE [Concomitant]
     Active Substance: BISOPROLOL FUMARATE
     Dosage: 5 (2 DOSES DAILY)
  6. AMLODIPINE BESYLATE [Concomitant]
     Active Substance: AMLODIPINE BESYLATE
     Dosage: 5 (2/D)
  7. Novanorm [Concomitant]
     Dosage: TID ?DAILY DOSE: 3 DOSAGE FORM
  8. LANTUS [Concomitant]
     Active Substance: INSULIN GLARGINE
  9. HUMALOG [Concomitant]
     Active Substance: INSULIN LISPRO
  10. PENTACARINAT [Concomitant]
     Active Substance: PENTAMIDINE ISETHIONATE
  11. IRBESARTAN [Concomitant]
     Active Substance: IRBESARTAN
     Dosage: 300 (1/D)
  12. KARDEGIC [Concomitant]
     Active Substance: ASPIRIN DL-LYSINE
  13. KEPPRA [Concomitant]
     Active Substance: LEVETIRACETAM
     Dosage: 500 (2 /D)
  14. PREDNISOLONE SODIUM METASULFOBENZOATE [Concomitant]
     Active Substance: PREDNISOLONE SODIUM METAZOATE
     Dosage: 2.5/D
  15. NEORAL [Concomitant]
     Active Substance: CYCLOSPORINE
     Dosage: 100 (2/D)

REACTIONS (6)
  - Neutropenia [Recovered/Resolved]
  - Pneumococcal sepsis [Unknown]
  - Ear infection [Unknown]
  - Monoparesis [Unknown]
  - Pachymeningitis [Unknown]
  - Status epilepticus [Unknown]

NARRATIVE: CASE EVENT DATE: 20100910
